FAERS Safety Report 6814221-1 (Version None)
Quarter: 2010Q2

REPORT INFORMATION
  Report Type: 
  Country: None (occurrence: None)
  Receive Date: 20100629
  Receipt Date: 20100609
  Transmission Date: 20101027
  Serious: Yes (Other)
  Sender: FDA-Public Use
  Company Number: JPI-P-010994

PATIENT
  Age: 41 Year
  Sex: Female
  Weight: 99.7913 kg

DRUGS (16)
  1. XYREM [Suspect]
     Indication: CATAPLEXY
     Dosage: 4.5 GM (2.25 GM, 2 IN 1 D), ORAL; 6 GM (3 GM, 2 IN 1 D), ORAL; 9 GM (4.5 GM, 2 IN 1 D), ORAL
     Route: 048
     Dates: start: 20090717, end: 20090727
  2. XYREM [Suspect]
     Indication: SOMNOLENCE
     Dosage: 4.5 GM (2.25 GM, 2 IN 1 D), ORAL; 6 GM (3 GM, 2 IN 1 D), ORAL; 9 GM (4.5 GM, 2 IN 1 D), ORAL
     Route: 048
     Dates: start: 20090717, end: 20090727
  3. XYREM [Suspect]
     Indication: CATAPLEXY
     Dosage: 4.5 GM (2.25 GM, 2 IN 1 D), ORAL; 6 GM (3 GM, 2 IN 1 D), ORAL; 9 GM (4.5 GM, 2 IN 1 D), ORAL
     Route: 048
     Dates: start: 20090728, end: 20090917
  4. XYREM [Suspect]
     Indication: SOMNOLENCE
     Dosage: 4.5 GM (2.25 GM, 2 IN 1 D), ORAL; 6 GM (3 GM, 2 IN 1 D), ORAL; 9 GM (4.5 GM, 2 IN 1 D), ORAL
     Route: 048
     Dates: start: 20090728, end: 20090917
  5. XYREM [Suspect]
     Indication: CATAPLEXY
     Dosage: 4.5 GM (2.25 GM, 2 IN 1 D), ORAL; 6 GM (3 GM, 2 IN 1 D), ORAL; 9 GM (4.5 GM, 2 IN 1 D), ORAL
     Route: 048
     Dates: start: 20090918, end: 20100501
  6. XYREM [Suspect]
     Indication: SOMNOLENCE
     Dosage: 4.5 GM (2.25 GM, 2 IN 1 D), ORAL; 6 GM (3 GM, 2 IN 1 D), ORAL; 9 GM (4.5 GM, 2 IN 1 D), ORAL
     Route: 048
     Dates: start: 20090918, end: 20100501
  7. DEXLANSOPRAZOLE [Concomitant]
  8. BUDESONIDE [Concomitant]
  9. MESALAMINE [Concomitant]
  10. METRONIDAZOLE [Concomitant]
  11. BUPROPION HCL [Concomitant]
  12. SUCRALFATE [Concomitant]
  13. QUETIAPINE FUMARATE [Concomitant]
  14. LEVOTHYROXINE SODIUM [Concomitant]
  15. DICLOFENAC SODIUM [Concomitant]
  16. VITAMIN D [Concomitant]

REACTIONS (16)
  - APHASIA [None]
  - COGNITIVE DISORDER [None]
  - COLITIS COLLAGENOUS [None]
  - CONDITION AGGRAVATED [None]
  - DEMENTIA [None]
  - DIARRHOEA [None]
  - FATIGUE [None]
  - GASTRITIS [None]
  - HEADACHE [None]
  - INITIAL INSOMNIA [None]
  - IRRITABILITY [None]
  - NAUSEA [None]
  - PYREXIA [None]
  - SINUS HEADACHE [None]
  - SINUSITIS [None]
  - SOMNOLENCE [None]
